FAERS Safety Report 18953468 (Version 1)
Quarter: 2021Q1

REPORT INFORMATION
  Report Type: Spontaneous
  Country: US (occurrence: US)
  Receive Date: 20210301
  Receipt Date: 20210301
  Transmission Date: 20210420
  Serious: Yes (Hospitalization)
  Sender: FDA-Public Use
  Company Number: None

PATIENT
  Age: 65 Year
  Sex: Male
  Weight: 129 kg

DRUGS (1)
  1. BAMLANIVIMAB. [Suspect]
     Active Substance: BAMLANIVIMAB
     Indication: COVID-19
     Dosage: ??          OTHER FREQUENCY:ONCE;?
     Route: 041
     Dates: start: 20210225, end: 20210225

REACTIONS (1)
  - Emergency care [None]

NARRATIVE: CASE EVENT DATE: 20210228
